FAERS Safety Report 24631918 (Version 1)
Quarter: 2024Q4

REPORT INFORMATION
  Report Type: Spontaneous
  Country: PT (occurrence: PT)
  Receive Date: 20241118
  Receipt Date: 20241118
  Transmission Date: 20250115
  Serious: Yes (Life-Threatening, Other)
  Sender: MYLAN
  Company Number: PT-BBM-PT-BBM-202402866

PATIENT
  Age: 34 Year
  Sex: Female

DRUGS (2)
  1. ROPIVACAINE [Suspect]
     Active Substance: ROPIVACAINE
     Indication: Product used for unknown indication
     Dosage: 5 MILLILITER, EVERY 5 MIN
     Route: 065
  2. LIDOCAINE [Suspect]
     Active Substance: LIDOCAINE
     Indication: Product used for unknown indication
     Dosage: 5 MILLILITER
     Route: 065

REACTIONS (3)
  - Maternal exposure during delivery [Recovering/Resolving]
  - Hypotension [Recovering/Resolving]
  - Post lumbar puncture syndrome [Recovering/Resolving]
